FAERS Safety Report 18749139 (Version 1)
Quarter: 2021Q1

REPORT INFORMATION
  Report Type: Spontaneous
  Country: CN (occurrence: CN)
  Receive Date: 20210116
  Receipt Date: 20210116
  Transmission Date: 20210419
  Serious: Yes (Other)
  Sender: FDA-Public Use
  Company Number: CN-ROCHE-2750663

PATIENT
  Age: 33 Year
  Sex: Male
  Weight: 75 kg

DRUGS (3)
  1. CELLCEPT [Suspect]
     Active Substance: MYCOPHENOLATE MOFETIL\MYCOPHENOLATE MOFETIL HYDROCHLORIDE
     Indication: ANTIPHOSPHOLIPID SYNDROME
     Route: 048
     Dates: start: 20201222
  2. CELLCEPT [Suspect]
     Active Substance: MYCOPHENOLATE MOFETIL\MYCOPHENOLATE MOFETIL HYDROCHLORIDE
     Route: 048
     Dates: start: 20201223
  3. CELLCEPT [Suspect]
     Active Substance: MYCOPHENOLATE MOFETIL\MYCOPHENOLATE MOFETIL HYDROCHLORIDE
     Route: 048
     Dates: start: 20201229, end: 20210113

REACTIONS (4)
  - Granulocytes abnormal [Recovered/Resolved]
  - Off label use [Unknown]
  - White blood cell count decreased [Recovered/Resolved]
  - Intentional product use issue [Unknown]
